FAERS Safety Report 5228165-2 (Version None)
Quarter: 2007Q1

REPORT INFORMATION
  Report Type: 
  Country: None (occurrence: None)
  Receive Date: 20070130
  Receipt Date: 20070117
  Transmission Date: 20070707
  Serious: Yes (Hospitalization)
  Sender: FDA-Public Use
  Company Number: 2007BI001242

PATIENT
  Age: 60 Year
  Sex: Male
  Weight: 78.0187 kg

DRUGS (2)
  1. AVONEX [Suspect]
     Indication: MULTIPLE SCLEROSIS
     Dosage: 30 UG;QW;IM
     Route: 030
     Dates: start: 20010101, end: 20050101
  2. AVONEX [Suspect]
     Indication: MULTIPLE SCLEROSIS
     Dosage: 30 UG;QW;IM
     Route: 030
     Dates: start: 20050101

REACTIONS (6)
  - ANAEMIA [None]
  - DEHYDRATION [None]
  - DIVERTICULITIS [None]
  - ELECTROLYTE IMBALANCE [None]
  - HAEMORRHAGE [None]
  - MULTIPLE SCLEROSIS [None]
